FAERS Safety Report 6739851-7 (Version None)
Quarter: 2010Q2

REPORT INFORMATION
  Report Type: 
  Country: None (occurrence: None)
  Receive Date: 20100525
  Receipt Date: 20100521
  Transmission Date: 20101027
  Serious: Yes (Death)
  Sender: FDA-Public Use
  Company Number: PHHY2010DE33038

PATIENT
  Sex: Female

DRUGS (1)
  1. EXELON [Suspect]
     Indication: DEMENTIA ALZHEIMER'S TYPE
     Dosage: 4.6MG/24 HOURS
     Route: 062
     Dates: start: 20091217

REACTIONS (2)
  - CARDIAC DISORDER [None]
  - LUNG DISORDER [None]
